FAERS Safety Report 19622903 (Version 1)
Quarter: 2021Q3

REPORT INFORMATION
  Report Type: Report from Study
  Country: IT (occurrence: IT)
  Receive Date: 20210728
  Receipt Date: 20210728
  Transmission Date: 20211014
  Serious: Yes (Other)
  Sender: FDA-Public Use
  Company Number: IT-EISAI MEDICAL RESEARCH-EC-2021-096528

PATIENT
  Age: 66 Year
  Sex: Female
  Weight: 70 kg

DRUGS (6)
  1. PARIET [Concomitant]
     Active Substance: RABEPRAZOLE SODIUM
     Indication: HYPERCHLORHYDRIA
     Route: 048
  2. RIVOTRIL [Concomitant]
     Active Substance: CLONAZEPAM
     Indication: EPILEPSY
  3. LENVIMA [Suspect]
     Active Substance: LENVATINIB
     Route: 048
     Dates: start: 20210505
  4. DAPAROX [Concomitant]
     Active Substance: PAROXETINE
     Indication: DEPRESSION
  5. GIANT [Concomitant]
     Active Substance: AMLODIPINE BESYLATE\OLMESARTAN MEDOXOMIL
     Indication: HYPOTENSION
     Dates: start: 20210415
  6. LENVIMA [Suspect]
     Active Substance: LENVATINIB
     Indication: SALIVARY GLAND CANCER
     Route: 048
     Dates: start: 20210320, end: 2021

REACTIONS (1)
  - Thrombocytopenia [Recovered/Resolved]

NARRATIVE: CASE EVENT DATE: 20210531
